FAERS Safety Report 10632016 (Version 1)
Quarter: 2014Q4

REPORT INFORMATION
  Report Type: Spontaneous
  Country: US (occurrence: None)
  Receive Date: 20141203
  Receipt Date: 20141203
  Transmission Date: 20150529
  Serious: Yes (Other)
  Sender: FDA-Public Use
  Company Number: None

PATIENT
  Age: 62 Year
  Sex: Female

DRUGS (2)
  1. ENOXAPARIN [Suspect]
     Active Substance: ENOXAPARIN
     Indication: DEEP VEIN THROMBOSIS
     Dosage: 80MG, INJECTABLE, EVERY 12 HOURS, SUBCUTANEOUS 057
     Route: 058
     Dates: start: 201407
  2. ENOXAPARIN [Suspect]
     Active Substance: ENOXAPARIN
     Indication: EMBOLISM VENOUS
     Dosage: 80MG, INJECTABLE, EVERY 12 HOURS, SUBCUTANEOUS 057
     Route: 058
     Dates: start: 201407

REACTIONS (1)
  - Nodule [None]

NARRATIVE: CASE EVENT DATE: 20141202
